FAERS Safety Report 7128025-6 (Version None)
Quarter: 2010Q4

REPORT INFORMATION
  Report Type: 
  Country: None (occurrence: None)
  Receive Date: 20101130
  Receipt Date: 20101125
  Transmission Date: 20110411
  Serious: Yes (Other)
  Sender: FDA-Public Use
  Company Number: PHHY2010CA74492

PATIENT
  Sex: Male

DRUGS (4)
  1. LAMISIL [Suspect]
     Indication: FUNGAL INFECTION
     Dosage: 250 MG, UNK
     Route: 048
     Dates: start: 20100720, end: 20100910
  2. ESOMEPRAZOLE [Concomitant]
     Dosage: 20 MG, QD
  3. NAPROXEN [Concomitant]
     Dosage: 500 MG, BID
  4. TRAMADOL HCL [Concomitant]
     Dosage: 100 MG, QD

REACTIONS (3)
  - AGEUSIA [None]
  - EATING DISORDER [None]
  - WEIGHT DECREASED [None]
